FAERS Safety Report 21899094 (Version 1)
Quarter: 2023Q1

REPORT INFORMATION
  Report Type: Spontaneous
  Country: US (occurrence: US)
  Receive Date: 20230123
  Receipt Date: 20230123
  Transmission Date: 20230417
  Serious: Yes (Other)
  Sender: FDA-Public Use
  Company Number: US-VIVUS, Inc.-2023V1000039

PATIENT
  Age: 14 Year
  Sex: Male
  Weight: 106.69 kg

DRUGS (2)
  1. QSYMIA [Suspect]
     Active Substance: PHENTERMINE HYDROCHLORIDE\TOPIRAMATE
     Indication: Weight decreased
     Route: 048
     Dates: start: 20221228, end: 20230113
  2. QSYMIA [Suspect]
     Active Substance: PHENTERMINE HYDROCHLORIDE\TOPIRAMATE
     Indication: Weight decreased
     Route: 048
     Dates: start: 20221214, end: 20221227

REACTIONS (8)
  - Blood pressure increased [Unknown]
  - Presyncope [Unknown]
  - Chest pain [Unknown]
  - Headache [Unknown]
  - Pain in extremity [Unknown]
  - Paraesthesia [Unknown]
  - Insomnia [Unknown]
  - Dizziness [Not Recovered/Not Resolved]

NARRATIVE: CASE EVENT DATE: 20230107
